FAERS Safety Report 8183575-9 (Version None)
Quarter: 2012Q1

REPORT INFORMATION
  Report Type: 
  Country: None (occurrence: None)
  Receive Date: 20120305
  Receipt Date: 20120224
  Transmission Date: 20120608
  Serious: Yes (Hospitalization)
  Sender: FDA-Public Use
  Company Number: US-JNJFOC-20120214203

PATIENT
  Sex: Female

DRUGS (5)
  1. DURAGESIC-100 [Suspect]
     Dosage: TWO 25 UG/HR PATCHES
     Route: 062
     Dates: start: 20120224
  2. DURAGESIC-100 [Suspect]
     Route: 062
     Dates: start: 20070101
  3. DURAGESIC-100 [Suspect]
     Indication: PROCEDURAL PAIN
     Route: 062
  4. FENTANYL CITRATE [Suspect]
     Indication: PROCEDURAL PAIN
     Route: 062
     Dates: start: 20120201, end: 20120224
  5. OXYCODONE HCL [Concomitant]
     Indication: PAIN
     Route: 065

REACTIONS (5)
  - OFF LABEL USE [None]
  - INSOMNIA [None]
  - DRUG INEFFECTIVE [None]
  - SURGERY [None]
  - WRONG TECHNIQUE IN DRUG USAGE PROCESS [None]
